FAERS Safety Report 7198149-6 (Version None)
Quarter: 2010Q4

REPORT INFORMATION
  Report Type: 
  Country: None (occurrence: None)
  Receive Date: 20101213
  Receipt Date: 20101201
  Transmission Date: 20110411
  Serious: Yes (Other)
  Sender: FDA-Public Use
  Company Number: GB-ACCORD-007053

PATIENT
  Age: 48 Year
  Sex: Female
  Weight: 87 kg

DRUGS (6)
  1. TOPIRAMATE [Suspect]
     Indication: DRUG THERAPY
     Dosage: 400.00 MG-1.0 DAY, ORAL
     Route: 048
  2. LAMOTRIGINE [Suspect]
     Indication: ILL-DEFINED DISORDER
  3. RISPERIDONE [Suspect]
     Indication: ILL-DEFINED DISORDER
  4. CARDIOVASCULAR SYSTEM DRUGS (CARDIOVASCULAR SYSTEM DRUGS) [Suspect]
     Indication: ILL-DEFINED DISORDER
  5. LOFEPRAMINE (LOFEPRAMINE) [Suspect]
     Indication: ILL-DEFINED DISORDER
  6. ANTIDEPRESSANTS (ANTIDEPRESSANTS) [Suspect]
     Indication: ILL-DEFINED DISORDER

REACTIONS (3)
  - PARAESTHESIA [None]
  - PARKINSONISM [None]
  - WEIGHT DECREASED [None]
